FAERS Safety Report 15410472 (Version 1)
Quarter: 2018Q3

REPORT INFORMATION
  Report Type: Spontaneous
  Country: US (occurrence: US)
  Receive Date: 20180913
  Receipt Date: 20180913
  Transmission Date: 20181010
  Serious: Yes (Death, Hospitalization)
  Sender: FDA-Public Use
  Company Number: None

PATIENT
  Age: 11 Day
  Sex: Male
  Weight: 4.4 kg

DRUGS (2)
  1. CARBOPLATIN. [Suspect]
     Active Substance: CARBOPLATIN
     Dates: end: 20160505
  2. ETOPOSIDE (VP?16) [Suspect]
     Active Substance: ETOPOSIDE
     Dates: end: 20160507

REACTIONS (10)
  - Hypotension [None]
  - Herpes zoster cutaneous disseminated [None]
  - Metabolic acidosis [None]
  - Bacteraemia [None]
  - Sepsis [None]
  - Abdominal compartment syndrome [None]
  - Hepatomegaly [None]
  - Respiratory acidosis [None]
  - Tumour lysis syndrome [None]
  - Blood culture positive [None]

NARRATIVE: CASE EVENT DATE: 20160512
